FAERS Safety Report 9121278 (Version 1)
Quarter: 2013Q1

REPORT INFORMATION
  Report Type: Spontaneous
  Country: BE (occurrence: BE)
  Receive Date: 20130225
  Receipt Date: 20130225
  Transmission Date: 20140127
  Serious: Yes (Death, Hospitalization, Other)
  Sender: FDA-Public Use
  Company Number: BE-PFIZER INC-2013063862

PATIENT
  Age: 65 Year
  Sex: Female

DRUGS (2)
  1. VENLAFAXINE HYDROCHLORIDE [Suspect]
     Dosage: 7000 MG, UNK
  2. LORAZEPAM [Suspect]
     Dosage: 40 MG, UNK

REACTIONS (12)
  - Overdose [Fatal]
  - Cardiogenic shock [Fatal]
  - Heart rate increased [Unknown]
  - Hypotension [Unknown]
  - Coma [Unknown]
  - Cardiac output decreased [Unknown]
  - Somnolence [Unknown]
  - Oxygen saturation decreased [Unknown]
  - Electrocardiogram QRS complex prolonged [Unknown]
  - Blood lactic acid increased [Unknown]
  - Blood creatinine increased [Unknown]
  - Rhythm idioventricular [Unknown]
